FAERS Safety Report 9642765 (Version 4)
Quarter: 2017Q2

REPORT INFORMATION
  Report Type: Report from Study
  Country: US (occurrence: US)
  Receive Date: 20131024
  Receipt Date: 20170621
  Transmission Date: 20170830
  Serious: Yes (Hospitalization)
  Sender: FDA-Public Use
  Company Number: US-JNJFOC-20131011924

PATIENT
  Age: 58 Year
  Sex: Male
  Weight: 107.05 kg

DRUGS (13)
  1. NORVASC [Concomitant]
     Active Substance: AMLODIPINE BESYLATE
     Route: 048
  2. APRESOLINE HYDROCHLORIDE [Concomitant]
     Active Substance: HYDRALAZINE HYDROCHLORIDE
     Route: 048
  3. VITAMIN D [Concomitant]
     Active Substance: CHOLECALCIFEROL
     Route: 061
  4. LOFIBRA [Concomitant]
     Active Substance: FENOFIBRATE
     Dosage: ONCE EVERY EVENING
     Route: 048
  5. LASIX [Concomitant]
     Active Substance: FUROSEMIDE
     Route: 048
  6. LOPRESSOR [Concomitant]
     Active Substance: METOPROLOL TARTRATE
     Route: 048
  7. EPOETIN ALFA [Concomitant]
     Active Substance: ERYTHROPOIETIN
     Route: 065
  8. LANTUS [Concomitant]
     Active Substance: INSULIN GLARGINE
     Dosage: 100 UNIT/ML: INJECT 35 UNITS INTO THE SKIN ONCE EVERY NIGHT AT BEDTIME.
     Route: 058
  9. USTEKINUMAB [Suspect]
     Active Substance: USTEKINUMAB
     Indication: PSORIASIS
     Route: 058
     Dates: start: 20130430, end: 20130430
  10. USTEKINUMAB [Suspect]
     Active Substance: USTEKINUMAB
     Indication: PSORIASIS
     Route: 058
     Dates: start: 201003
  11. MEVACOR [Concomitant]
     Active Substance: LOVASTATIN
     Dosage: ONCE EVERY EVENING
     Route: 048
  12. ZEMPLAR [Concomitant]
     Active Substance: PARICALCITOL
     Dosage: MONDAY- WEDNESDAY- FRIDAY.
     Route: 048
  13. ZEMPLAR [Concomitant]
     Active Substance: PARICALCITOL
     Dosage: TUESDAY- THURSDAY -SATURDAY -SUNDAY
     Route: 048

REACTIONS (1)
  - Hydrocephalus [Recovered/Resolved]

NARRATIVE: CASE EVENT DATE: 20130821
